FAERS Safety Report 23941173 (Version 1)
Quarter: 2024Q2

REPORT INFORMATION
  Report Type: Spontaneous
  Country: GB (occurrence: GB)
  Receive Date: 20240605
  Receipt Date: 20240605
  Transmission Date: 20240716
  Serious: Yes (Other)
  Sender: FDA-Public Use
  Company Number: GB-BESINS-2024-02710

PATIENT
  Sex: Female

DRUGS (3)
  1. PROVERA [Suspect]
     Active Substance: MEDROXYPROGESTERONE ACETATE
     Dosage: UNK
  2. ESTRADIOL [Suspect]
     Active Substance: ESTRADIOL
     Indication: Hormone replacement therapy
     Dosage: OESTROGEL-PUMP-PACK
  3. EPIPEN [GABAPENTIN] [Concomitant]
     Indication: Food allergy

REACTIONS (4)
  - Disorientation [Unknown]
  - Tinnitus [Unknown]
  - Dizziness [Unknown]
  - Pruritus [Unknown]
